FAERS Safety Report 12230270 (Version 1)
Quarter: 2016Q2

REPORT INFORMATION
  Report Type: Spontaneous
  Country: BR (occurrence: BR)
  Receive Date: 20160401
  Receipt Date: 20160401
  Transmission Date: 20160815
  Serious: Yes (Hospitalization)
  Sender: FDA-Public Use
  Company Number: BR-PFIZER INC-2016174646

PATIENT
  Age: 76 Year
  Sex: Female
  Weight: 68 kg

DRUGS (5)
  1. FAULDLEUCO [Suspect]
     Active Substance: LEUCOVORIN CALCIUM
     Indication: COLON CANCER
     Dosage: 349.6 MG, EVERY 14 DAYS
     Route: 042
     Dates: start: 20151117
  2. CAMPTOSAR [Suspect]
     Active Substance: IRINOTECAN HYDROCHLORIDE
     Indication: COLON CANCER
     Dosage: 283 MG, EVERY 14 DAYS
     Route: 042
     Dates: start: 20151117
  3. CAMPTOSAR [Suspect]
     Active Substance: IRINOTECAN HYDROCHLORIDE
     Dosage: UNK
     Route: 042
  4. FAULDFLUOR [Suspect]
     Active Substance: FLUOROURACIL
     Indication: COLON CANCER
     Dosage: 629 MG, EVERY 14 DAYS
     Route: 042
     Dates: start: 20151117
  5. FAULDFLUOR [Suspect]
     Active Substance: FLUOROURACIL
     Dosage: (INFUSION BOMB 46H) 4194 MG, EVERY 14 DAYS
     Route: 042

REACTIONS (4)
  - Escherichia infection [Recovered/Resolved]
  - Mucosal inflammation [Recovered/Resolved]
  - Pyrexia [Recovered/Resolved]
  - Proctitis [Recovered/Resolved]

NARRATIVE: CASE EVENT DATE: 20160226
